FAERS Safety Report 9049740 (Version 5)
Quarter: 2013Q1

REPORT INFORMATION
  Report Type: Report from Study
  Country: CA (occurrence: CA)
  Receive Date: 20130129
  Receipt Date: 20130308
  Transmission Date: 20140127
  Serious: Yes (Other)
  Sender: FDA-Public Use
  Company Number: CA-ROCHE-1183986

PATIENT
  Age: 43 None
  Sex: Female
  Weight: 50 kg

DRUGS (13)
  1. HERCEPTIN [Suspect]
     Indication: BREAST CANCER METASTATIC
     Route: 042
     Dates: start: 20130104
  2. HERCEPTIN [Suspect]
     Route: 065
     Dates: start: 20130220
  3. XELODA [Suspect]
     Indication: BREAST CANCER
     Route: 048
     Dates: end: 201211
  4. TUMS [Concomitant]
  5. IMOVANE [Concomitant]
  6. ATIVAN [Concomitant]
  7. PANTOLOC [Concomitant]
  8. DOMPERIDONE [Concomitant]
  9. MORPHINE [Concomitant]
     Route: 065
  10. TAXOL [Concomitant]
     Indication: CHEMOTHERAPY
     Route: 065
     Dates: start: 20121231, end: 201302
  11. TYLENOL [Concomitant]
     Indication: PREMEDICATION
     Route: 048
     Dates: start: 20130104
  12. BENADRYL [Concomitant]
     Indication: PREMEDICATION
     Route: 048
     Dates: start: 20130128
  13. TYKERB [Concomitant]
     Route: 065
     Dates: start: 201302

REACTIONS (7)
  - Pleural effusion [Not Recovered/Not Resolved]
  - Excoriation [Not Recovered/Not Resolved]
  - Disease progression [Unknown]
  - Heart rate increased [Unknown]
  - Weight increased [Unknown]
  - Blood pressure increased [Not Recovered/Not Resolved]
  - Heart rate irregular [Recovering/Resolving]
